FAERS Safety Report 17008931 (Version 1)
Quarter: 2019Q4

REPORT INFORMATION
  Report Type: Spontaneous
  Country: NG (occurrence: NG)
  Receive Date: 20191108
  Receipt Date: 20191108
  Transmission Date: 20200122
  Serious: Yes (Death)
  Sender: FDA-Public Use
  Company Number: NG-SCIEGEN PHARMACEUTICALS INC-2019SCILIT00342

PATIENT

DRUGS (4)
  1. NEVIRAPINE TABLETS [Suspect]
     Active Substance: NEVIRAPINE
  2. COTRIMOXAZOLE [Concomitant]
     Active Substance: SULFAMETHOXAZOLE\TRIMETHOPRIM
  3. ZIDOVUDINE/LAMIVUDINE [Concomitant]
     Active Substance: LAMIVUDINE\ZIDOVUDINE
  4. MULTIVITAMINS WITH MINERALS [Concomitant]
     Active Substance: MINERALS\VITAMINS

REACTIONS (1)
  - Anaemia [Fatal]
